FAERS Safety Report 23442526 (Version 1)
Quarter: 2024Q1

REPORT INFORMATION
  Report Type: Spontaneous
  Country: IT (occurrence: IT)
  Receive Date: 20240125
  Receipt Date: 20240125
  Transmission Date: 20240410
  Serious: Yes (Other)
  Sender: FDA-Public Use
  Company Number: IT-MINISAL02-965502

PATIENT
  Age: 76 Year
  Sex: Male

DRUGS (2)
  1. OXALIPLATIN [Suspect]
     Active Substance: OXALIPLATIN
     Indication: Gastric cancer
     Dosage: 160 MILLIGRAM, START OF THERAPY 11/2022 - THERAPY EVERY 21 DAYS - 2ND CYCLE
     Route: 042
     Dates: start: 20221213
  2. CAPECITABINE [Suspect]
     Active Substance: CAPECITABINE
     Indication: Gastric cancer
     Dosage: 2000 MILLIGRAM, START OF THERAPY 11/2022 - THERAPY EVERY 21 DAYS, DAYS 1 - 14 - II CYCLE
     Route: 048
     Dates: start: 20221214

REACTIONS (5)
  - Azotaemia [Recovering/Resolving]
  - Constipation [Recovered/Resolved]
  - Nausea [Recovered/Resolved]
  - Haemoglobin decreased [Recovering/Resolving]
  - Off label use [Recovering/Resolving]

NARRATIVE: CASE EVENT DATE: 20221213
